FAERS Safety Report 5697156-X (Version None)
Quarter: 2008Q2

REPORT INFORMATION
  Report Type: 
  Country: None (occurrence: None)
  Receive Date: 20080408
  Receipt Date: 20070529
  Transmission Date: 20081010
  Serious: No
  Sender: FDA-Public Use
  Company Number: US-BAYER-US-2007-019932

PATIENT
  Age: 18 Year
  Sex: Female
  Weight: 52 kg

DRUGS (3)
  1. YASMIN [Suspect]
     Route: 048
     Dates: start: 20060201
  2. ALLEGRA [Concomitant]
     Indication: MULTIPLE ALLERGIES
     Route: 048
  3. SINGULAIR [Concomitant]
     Indication: MULTIPLE ALLERGIES
     Dosage: UNIT DOSE: 10 MG
     Route: 048

REACTIONS (2)
  - ABDOMINAL PAIN LOWER [None]
  - MENORRHAGIA [None]
